FAERS Safety Report 4848633-2 (Version None)
Quarter: 2005Q4

REPORT INFORMATION
  Report Type: 
  Country: None (occurrence: None)
  Receive Date: 20051206
  Receipt Date: 20051121
  Transmission Date: 20060501
  Serious: Yes (Hospitalization, Disabling)
  Sender: FDA-Public Use
  Company Number: 2005158167

PATIENT
  Age: 74 Year
  Sex: Male

DRUGS (4)
  1. ZYVOXID TABLET (LINEZOLID) [Suspect]
     Indication: INFECTION
     Dosage: 1200 MG (600 MG, 2 IN 1 D), ORAL
     Route: 048
  2. ALLOPURINOL [Concomitant]
  3. ACETAMINOPHEN [Concomitant]
  4. OMEPRAZOLE [Concomitant]

REACTIONS (7)
  - ANKYLOSING SPONDYLITIS [None]
  - BRUCELLOSIS [None]
  - CONDITION AGGRAVATED [None]
  - DIFFICULTY IN WALKING [None]
  - MUSCULOSKELETAL PAIN [None]
  - MYALGIA [None]
  - PARAESTHESIA [None]
